FAERS Safety Report 9013352 (Version 1)
Quarter: 2013Q1

REPORT INFORMATION
  Report Type: Spontaneous
  Country: US (occurrence: US)
  Receive Date: 20130114
  Receipt Date: 20130114
  Transmission Date: 20140127
  Serious: Yes (Other)
  Sender: FDA-Public Use
  Company Number: US-009507513-1301USA004134

PATIENT
  Age: 83 Year
  Sex: Female

DRUGS (13)
  1. SINGULAIR [Suspect]
     Indication: ASTHMA
     Route: 048
  2. SINGULAIR [Suspect]
     Indication: BLOOD CHOLESTEROL INCREASED
  3. SINGULAIR [Suspect]
     Indication: HYPERTENSION
  4. LIPITOR [Suspect]
     Dosage: UNK
     Route: 048
  5. LIPITOR [Suspect]
     Dosage: 10 MG, QD
     Route: 048
  6. PROTONIX [Concomitant]
  7. SYMBICORT [Concomitant]
  8. CALCIUM (UNSPECIFIED) [Concomitant]
  9. VITAMINS (UNSPECIFIED) [Concomitant]
  10. PLAVIX [Concomitant]
     Dosage: 75 MG, UNKNOWN
  11. LISINOPRIL [Concomitant]
  12. PREVACID [Concomitant]
  13. ADVAIR [Concomitant]

REACTIONS (6)
  - Withdrawal syndrome [Unknown]
  - Vomiting [Unknown]
  - Nausea [Unknown]
  - Lipids abnormal [Unknown]
  - Diarrhoea [Unknown]
  - Blood cholesterol increased [Unknown]
